FAERS Safety Report 5238489-0 (Version None)
Quarter: 2007Q1

REPORT INFORMATION
  Report Type: 
  Country: None (occurrence: None)
  Receive Date: 20070215
  Receipt Date: 20070207
  Transmission Date: 20070707
  Serious: Yes (Other)
  Sender: FDA-Public Use
  Company Number: US-ELI_LILLY_AND_COMPANY-US200601002035

PATIENT
  Age: 58 Year
  Sex: Male
  Weight: 81.632 kg

DRUGS (3)
  1. VASOTEC [Concomitant]
     Dosage: 5 MG, UNK
  2. ZESTRIL [Concomitant]
     Dosage: 5 MG, DAILY (1/D)
  3. ZYPREXA [Suspect]
     Indication: SCHIZOPHRENIA
     Dates: start: 19980423

REACTIONS (5)
  - ABSCESS [None]
  - BLOODY DISCHARGE [None]
  - DIABETES MELLITUS NON-INSULIN-DEPENDENT [None]
  - WEIGHT DECREASED [None]
  - WEIGHT INCREASED [None]
